FAERS Safety Report 4546878-2 (Version None)
Quarter: 2005Q1

REPORT INFORMATION
  Report Type: 
  Country: None (occurrence: None)
  Receive Date: 20050105
  Receipt Date: 20041217
  Transmission Date: 20050727
  Serious: Yes (Hospitalization)
  Sender: FDA-Public Use
  Company Number: REM_00077_2004

PATIENT
  Age: 55 Year
  Sex: Male
  Weight: 113 kg

DRUGS (1)
  1. REMODULIN [Suspect]
     Indication: PULMONARY HYPERTENSION
     Dosage: 30 NG/KG/MIN CONTINUOUS SC
     Route: 058
     Dates: start: 20040922

REACTIONS (7)
  - BODY TEMPERATURE DECREASED [None]
  - DEVICE FAILURE [None]
  - DIARRHOEA [None]
  - FLUSHING [None]
  - HEADACHE [None]
  - PAIN IN EXTREMITY [None]
  - VOMITING [None]
